FAERS Safety Report 5165228-4 (Version None)
Quarter: 2006Q4

REPORT INFORMATION
  Report Type: 
  Country: None (occurrence: None)
  Receive Date: 20061124
  Receipt Date: 20061110
  Transmission Date: 20070319
  Serious: Yes (Hospitalization)
  Sender: FDA-Public Use
  Company Number: 2006140686

PATIENT
  Age: 63 Year
  Sex: Female
  Weight: 48.8 kg

DRUGS (3)
  1. SUTENT [Suspect]
     Indication: METASTATIC RENAL CELL CARCINOMA
     Dosage: 50 MG (50 MG, OD - DAILY), ORAL
     Route: 048
     Dates: start: 20061012, end: 20061108
  2. CELEBREX [Concomitant]
  3. ULTRACET (PARACETAMOL, TRAMDOL HYDROCHLORIDE) [Concomitant]

REACTIONS (4)
  - CARDIAC FAILURE [None]
  - ELECTROCARDIOGRAM ST SEGMENT ABNORMAL [None]
  - HYPERBILIRUBINAEMIA [None]
  - VEIN DISORDER [None]
